FAERS Safety Report 9992839 (Version 1)
Quarter: 2014Q1

REPORT INFORMATION
  Report Type: Spontaneous
  Country: US (occurrence: US)
  Receive Date: 20140310
  Receipt Date: 20140310
  Transmission Date: 20141002
  Serious: No
  Sender: FDA-Public Use
  Company Number: US-ABBVIE-13P-163-1108810-00

PATIENT
  Age: 28 Year
  Sex: Female

DRUGS (1)
  1. LUPRON DEPOT [Suspect]
     Indication: ENDOMETRIOSIS
     Dosage: MEDICATION REC^D FROM PUBLIX
     Route: 050
     Dates: start: 20130523

REACTIONS (2)
  - Lip swelling [Recovered/Resolved]
  - Ear swelling [Recovered/Resolved]
